FAERS Safety Report 5375188-9 (Version None)
Quarter: 2007Q2

REPORT INFORMATION
  Report Type: 
  Country: None (occurrence: None)
  Receive Date: 20070625
  Receipt Date: 20070312
  Transmission Date: 20071010
  Serious: Yes (Hospitalization)
  Sender: FDA-Public Use
  Company Number: 07P-163-0361711-00

PATIENT
  Age: 51 Year
  Sex: Female
  Weight: 119 kg

DRUGS (11)
  1. HUMIRA [Suspect]
     Indication: PSORIATIC ARTHROPATHY
     Dosage: 40 MG, 1 IN 2 WK, SUBCUTANEOUS
     Route: 058
     Dates: start: 20060801, end: 20061001
  2. INSULIN LISPRO [Concomitant]
  3. INSULIN GLARGINE [Concomitant]
  4. DIOVAN [Concomitant]
  5. ATORVASTATIN CALCIUM [Concomitant]
  6. HYDROCHLOROTHIAZIDE [Concomitant]
  7. LEVOTHYROXINE SODIUM [Concomitant]
  8. GABAPENTIN [Concomitant]
  9. AMITRIPTYLINE HCL [Concomitant]
  10. FLUTICASONE PROPIONATE [Concomitant]
  11. SALMETEROL XINAFOATE [Concomitant]

REACTIONS (2)
  - ASTHMA [None]
  - BRONCHITIS [None]
